FAERS Safety Report 17571853 (Version 1)
Quarter: 2020Q1

REPORT INFORMATION
  Report Type: Spontaneous
  Country: US (occurrence: US)
  Receive Date: 20200321
  Receipt Date: 20200321
  Transmission Date: 20200409
  Serious: Yes (Other)
  Sender: FDA-Public Use
  Company Number: None

PATIENT
  Age: 41 Year
  Sex: Female
  Weight: 58.5 kg

DRUGS (7)
  1. BLACK PEPPER PILL [Concomitant]
  2. THYROSOL [Concomitant]
  3. IRON [Concomitant]
     Active Substance: IRON
  4. CURCUMIN [Concomitant]
     Active Substance: CURCUMIN
  5. ALLERGY RELIEF (LORATADINE) [Suspect]
     Active Substance: LORATADINE
     Indication: HYPERSENSITIVITY
     Dosage: ?          QUANTITY:1 CAPSULE(S);?
     Route: 048
     Dates: start: 20200306, end: 20200306
  6. VITAMIN D [Concomitant]
     Active Substance: VITAMIN D NOS
  7. ADRENAL SUPPORT MEDS [Concomitant]

REACTIONS (8)
  - Product use complaint [None]
  - Heart rate increased [None]
  - Dizziness [None]
  - Vertigo [None]
  - Feeling abnormal [None]
  - Feeling hot [None]
  - Nausea [None]
  - Adverse reaction [None]

NARRATIVE: CASE EVENT DATE: 20200306
